FAERS Safety Report 4897774-2 (Version None)
Quarter: 2006Q1

REPORT INFORMATION
  Report Type: 
  Country: None (occurrence: None)
  Receive Date: 20060201
  Receipt Date: 20060125
  Transmission Date: 20060701
  Serious: Yes (Death, Hospitalization)
  Sender: FDA-Public Use
  Company Number: US-JNJFOC-20040910066

PATIENT
  Age: 78 Year
  Sex: Female

DRUGS (5)
  1. LEVAQUIN [Suspect]
     Indication: PNEUMONIA
     Route: 048
     Dates: start: 20031229, end: 20040108
  2. LEVAQUIN [Suspect]
     Indication: BRONCHITIS
     Route: 048
     Dates: start: 20031229, end: 20040108
  3. LEVAQUIN [Suspect]
     Route: 042
  4. LEVAQUIN [Suspect]
     Route: 048
  5. LASIX [Concomitant]

REACTIONS (6)
  - CARDIAC FAILURE [None]
  - GASTRITIS [None]
  - HEART RATE INCREASED [None]
  - INSOMNIA [None]
  - NAUSEA [None]
  - RENAL FAILURE [None]
